FAERS Safety Report 7865443-2 (Version None)
Quarter: 2011Q4

REPORT INFORMATION
  Report Type: 
  Country: None (occurrence: None)
  Receive Date: 20111028
  Receipt Date: 20101229
  Transmission Date: 20120403
  Serious: No
  Sender: FDA-Public Use
  Company Number: US-GLAXOSMITHKLINE-A0902028A

PATIENT
  Sex: Female

DRUGS (45)
  1. ACIPHEX [Concomitant]
  2. OMEPRAZOLE [Concomitant]
  3. ZYRTEC [Concomitant]
  4. OSTEOFLEX [Concomitant]
  5. VITAMIN D CALCIUM [Concomitant]
  6. SULFUR [Concomitant]
  7. FUROSEMIDE [Concomitant]
  8. HYDROCODONE BITARTRATE [Concomitant]
  9. OASIS EYEDROPS [Concomitant]
  10. ADVAIR DISKUS 100/50 [Suspect]
     Indication: ASTHMA
     Dosage: 1PUFF TWICE PER DAY
     Route: 055
     Dates: start: 20010101, end: 20070101
  11. VERAPAMIL [Concomitant]
  12. SINGULAIR [Concomitant]
  13. VERAMYST [Concomitant]
  14. NEURONTIN [Concomitant]
  15. VICODIN [Concomitant]
  16. CELEBREX [Concomitant]
  17. SPIRONOLACTONE [Concomitant]
  18. LIPITOR [Concomitant]
  19. POTASSIUM [Concomitant]
  20. MYCELEX [Concomitant]
  21. AMITRIPTYLINE HCL [Concomitant]
  22. LYRICA [Concomitant]
  23. LEVAQUIN [Concomitant]
  24. UNKNOWN [Concomitant]
  25. LEVOTHYROXINE SODIUM [Concomitant]
  26. DIFLUNISAL [Concomitant]
  27. ELESTAT [Concomitant]
  28. PHENERGAN HCL [Concomitant]
  29. POLYETHYLENE GLYCOL [Concomitant]
  30. KEFLEX [Concomitant]
  31. BENTYL [Concomitant]
  32. FEXOFENADINE [Concomitant]
  33. CYCLOPHOSPHAMIDE [Concomitant]
  34. CLONAZEPAM [Concomitant]
  35. NITROGLYCERIN [Concomitant]
  36. XYZAL [Concomitant]
  37. ULTRAM [Concomitant]
  38. AZASITE [Concomitant]
  39. OPTIVE [Concomitant]
  40. PROVENTIL-HFA [Concomitant]
  41. TOBRADEX [Concomitant]
  42. DOXYCYCLINE [Concomitant]
  43. REFRESH TEARS [Concomitant]
  44. MAGNESIUM [Concomitant]
  45. MSM [Concomitant]

REACTIONS (4)
  - GLOSSODYNIA [None]
  - CANDIDIASIS [None]
  - OROPHARYNGEAL PAIN [None]
  - MOUTH ULCERATION [None]
